FAERS Safety Report 8424436-7 (Version None)
Quarter: 2012Q2

REPORT INFORMATION
  Report Type: 
  Country: None (occurrence: None)
  Receive Date: 20120609
  Receipt Date: 20120604
  Transmission Date: 20120825
  Serious: Yes (Hospitalization)
  Sender: FDA-Public Use
  Company Number: CA-EISAI INC-E2080-00499-SOL-CA

PATIENT
  Age: 20 Year
  Sex: Male

DRUGS (1)
  1. BANZEL [Suspect]
     Dosage: DOSE, FREQUENCY, AND FORM OF ADMIN UNKNOWN

REACTIONS (3)
  - CONVULSION [None]
  - DYSKINESIA [None]
  - CONFUSIONAL STATE [None]
